FAERS Safety Report 6864632-3 (Version None)
Quarter: 2010Q3

REPORT INFORMATION
  Report Type: 
  Country: None (occurrence: None)
  Receive Date: 20100721
  Receipt Date: 20080610
  Transmission Date: 20110219
  Serious: Yes (Other)
  Sender: FDA-Public Use
  Company Number: US-PFIZER INC-2008027441

PATIENT
  Sex: Male

DRUGS (13)
  1. CHANTIX [Suspect]
     Route: 048
  2. LORTAB [Concomitant]
  3. FLONASE [Concomitant]
  4. SPIRIVA [Concomitant]
  5. ALBUTEROL [Concomitant]
     Route: 055
  6. BECONASE [Concomitant]
  7. CLONAZEPAM [Concomitant]
  8. LASIX [Concomitant]
  9. POTASSIUM CHLORIDE [Concomitant]
  10. ADVAIR DISKUS 100/50 [Concomitant]
  11. CITALOPRAM [Concomitant]
  12. QUETIAPINE FUMARATE [Concomitant]
  13. CLARITIN [Concomitant]
     Route: 048

REACTIONS (1)
  - SUICIDE ATTEMPT [None]
